FAERS Safety Report 11460611 (Version 2)
Quarter: 2015Q3

REPORT INFORMATION
  Report Type: Report from Study
  Country: US (occurrence: US)
  Receive Date: 20150904
  Receipt Date: 20150904
  Transmission Date: 20151125
  Serious: Yes (Hospitalization)
  Sender: FDA-Public Use
  Company Number: US-ABBVIE-15K-163-1370074-00

PATIENT

DRUGS (1)
  1. HUMIRA [Suspect]
     Active Substance: ADALIMUMAB
     Indication: MATERNAL EXPOSURE TIMING UNSPECIFIED
     Route: 064

REACTIONS (5)
  - Respiratory tract malformation [Unknown]
  - Gastrooesophageal reflux disease [Unknown]
  - Cyanosis neonatal [Unknown]
  - Feeding disorder of infancy or early childhood [Recovered/Resolved]
  - Foetal exposure during pregnancy [Unknown]
